FAERS Safety Report 9082560 (Version 1)
Quarter: 2013Q1

REPORT INFORMATION
  Report Type: Spontaneous
  Country: MX (occurrence: MX)
  Receive Date: 20130130
  Receipt Date: 20130130
  Transmission Date: 20140127
  Serious: Yes (Other)
  Sender: FDA-Public Use
  Company Number: MX-ELI_LILLY_AND_COMPANY-MX201301007679

PATIENT
  Age: 22 Year
  Sex: Male
  Weight: 55 kg

DRUGS (2)
  1. HUMALOG 25% LISPRO, 75% NPL [Suspect]
     Indication: DIABETES MELLITUS
     Dosage: 49 IU, EACH MORNING
     Route: 058
  2. HUMALOG 25% LISPRO, 75% NPL [Suspect]
     Dosage: 18 IU, EACH EVENING
     Route: 058

REACTIONS (1)
  - Foreign body [Unknown]
